FAERS Safety Report 4454041-9 (Version None)
Quarter: 2004Q3

REPORT INFORMATION
  Report Type: 
  Country: None (occurrence: None)
  Receive Date: 20040826
  Receipt Date: 20040723
  Transmission Date: 20050211
  Serious: No
  Sender: FDA-Public Use
  Company Number: WAES 0407USA02233

PATIENT
  Sex: Female

DRUGS (4)
  1. ZETIA [Suspect]
     Indication: HYPERCHOLESTEROLAEMIA
     Dosage: 10 MG/DAILY/PO
     Route: 048
     Dates: start: 20040101
  2. LIPITOR [Suspect]
     Dates: start: 20040101, end: 20040301
  3. LOPRESSOR [Concomitant]
  4. ZESTRIL [Concomitant]

REACTIONS (2)
  - DRUG INEFFECTIVE [None]
  - HEPATIC ENZYME INCREASED [None]
